FAERS Safety Report 8968507 (Version 1)
Quarter: 2012Q4

REPORT INFORMATION
  Report Type: 
  Country: FR (occurrence: FR)
  Receive Date: 20121217
  Receipt Date: 20121217
  Transmission Date: 20130627
  Serious: Yes (Hospitalization, Other)
  Sender: FDA-Public Use
  Company Number: FR-VERTEX PHARMACEUTICALS INC.-AE-2011-000210

PATIENT
  Age: 76 Year
  Sex: Male
  Weight: 77 kg

DRUGS (6)
  1. VX-950 (TELAPREVIR) [Suspect]
     Indication: HEPATITIS C
     Dosage: 750 mg, tid
     Route: 048
     Dates: start: 20110418
  2. COPEGUS [Suspect]
     Indication: HEPATITIS C
     Dosage: Dosage Form: Tablets
     Route: 048
     Dates: start: 20110614
  3. COPEGUS [Suspect]
     Dosage: Dosage Form: Tablets
     Route: 048
     Dates: start: 20110418, end: 20110614
  4. PEGASYS [Suspect]
     Indication: HEPATITIS C
     Dosage: Dosage Form: Injection
     Route: 058
     Dates: start: 20110418, end: 201106
  5. AVLOCARDYL [Concomitant]
     Indication: VARICES OESOPHAGEAL
     Dosage: 160 mg, qd
     Dates: start: 2007
  6. LANTUS [Concomitant]
     Indication: TYPE 1 DIABETES MELLITUS
     Dosage: UNK
     Route: 058

REACTIONS (9)
  - Thrombocytopenia [Unknown]
  - Thrombocytopenia [Recovered/Resolved]
  - Treatment noncompliance [Unknown]
  - Inappropriate schedule of drug administration [Unknown]
  - Anaemia [Not Recovered/Not Resolved]
  - Neutropenia [Recovered/Resolved]
  - Leukopenia [Recovered/Resolved]
  - Neutropenia [Recovered/Resolved]
  - Anaemia [Recovered/Resolved]
